FAERS Safety Report 16884885 (Version 1)
Quarter: 2019Q4

REPORT INFORMATION
  Report Type: Spontaneous
  Country: US (occurrence: US)
  Receive Date: 20191003
  Receipt Date: 20191003
  Transmission Date: 20200122
  Serious: Yes (Death)
  Sender: FDA-Public Use
  Company Number: None

PATIENT
  Age: 56 Year
  Sex: Female
  Weight: 122 kg

DRUGS (1)
  1. ELIQUIS [Suspect]
     Active Substance: APIXABAN
     Indication: PULMONARY EMBOLISM
     Route: 048
     Dates: start: 20190918, end: 20190924

REACTIONS (8)
  - Gastrointestinal haemorrhage [None]
  - Septic shock [None]
  - Metabolic acidosis [None]
  - Acute respiratory distress syndrome [None]
  - Shock haemorrhagic [None]
  - Pulmonary embolism [None]
  - Cardiogenic shock [None]
  - Cardio-respiratory arrest [None]

NARRATIVE: CASE EVENT DATE: 20190924
